FAERS Safety Report 7741983-1 (Version None)
Quarter: 2011Q3

REPORT INFORMATION
  Report Type: 
  Country: None (occurrence: None)
  Receive Date: 20110912
  Receipt Date: 20110908
  Transmission Date: 20111222
  Serious: Yes (Disabling, Other)
  Sender: FDA-Public Use
  Company Number: US-JNJFOC-20101104325

PATIENT
  Sex: Female

DRUGS (3)
  1. REMICADE [Suspect]
     Indication: CROHN'S DISEASE
     Route: 042
     Dates: start: 20020801
  2. REMICADE [Suspect]
     Dosage: FOUR DOSES RECEIVED
     Route: 042
     Dates: start: 19990801
  3. REMICADE [Suspect]
     Route: 042
     Dates: start: 20021001, end: 20030101

REACTIONS (5)
  - ABORTION SPONTANEOUS [None]
  - HYPERBILIRUBINAEMIA [None]
  - DEMYELINATION [None]
  - FIBROMYALGIA [None]
  - MATERNAL EXPOSURE DURING PREGNANCY [None]
